FAERS Safety Report 17241306 (Version 1)
Quarter: 2020Q1

REPORT INFORMATION
  Report Type: Spontaneous
  Country: BR (occurrence: BR)
  Receive Date: 20200107
  Receipt Date: 20200107
  Transmission Date: 20200409
  Serious: Yes (Other)
  Sender: FDA-Public Use
  Company Number: BR-FRESENIUS KABI-FK202000086

PATIENT
  Age: 16 Year
  Sex: Male

DRUGS (2)
  1. ACICLOVIR (MANUFACTURER UNKNOWN) [Suspect]
     Active Substance: ACYCLOVIR
     Indication: PRODUCT USED FOR UNKNOWN INDICATION
     Route: 042
  2. CLAVULANATE POTASSIUM/AMOXICILLIN TRIHYDRATE [Concomitant]
     Active Substance: AMOXICILLIN\CLAVULANATE POTASSIUM
     Indication: OTITIS MEDIA
     Dosage: UNKNOWN
     Route: 065

REACTIONS (1)
  - Herpes zoster cutaneous disseminated [Recovered/Resolved]
